FAERS Safety Report 8307494-X (Version None)
Quarter: 2012Q2

REPORT INFORMATION
  Report Type: 
  Country: None (occurrence: None)
  Receive Date: 20120424
  Receipt Date: 20120419
  Transmission Date: 20120825
  Serious: Yes (Other)
  Sender: FDA-Public Use
  Company Number: US-AMGEN-USASP2012025060

PATIENT
  Age: 10 Year
  Sex: Female

DRUGS (4)
  1. EPOETIN ALFA [Suspect]
     Indication: PRODUCT USED FOR UNKNOWN INDICATION
     Dosage: UNK
  2. SOLIRIS [Suspect]
     Indication: HAEMOLYTIC URAEMIC SYNDROME
     Dosage: 1200 MG, Q2WK
     Route: 042
     Dates: start: 20120101
  3. SOLIRIS [Suspect]
     Dosage: 300 MG, UNK
  4. SOLIRIS [Suspect]
     Dosage: 900 MG, Q2WK
     Route: 042
     Dates: start: 20111001

REACTIONS (4)
  - BONE MARROW FAILURE [None]
  - ANAEMIA [None]
  - RETICULOCYTE COUNT DECREASED [None]
  - DRUG RESISTANCE [None]
